FAERS Safety Report 15491075 (Version 3)
Quarter: 2024Q1

REPORT INFORMATION
  Report Type: Other
  Country: PT (occurrence: PT)
  Receive Date: 20181012
  Receipt Date: 20240127
  Transmission Date: 20240410
  Serious: Yes (Other)
  Sender: FDA-Public Use
  Company Number: PT-TEVA-2018-PT-958424

PATIENT
  Age: 74 Year
  Sex: Female

DRUGS (7)
  1. MYCOPHENOLATE MOFETIL [Suspect]
     Active Substance: MYCOPHENOLATE MOFETIL
     Indication: Product used for unknown indication
     Route: 065
  2. SIMVASTATIN [Suspect]
     Active Substance: SIMVASTATIN
     Indication: Dyslipidaemia
     Route: 065
  3. PREDNISOLONE [Suspect]
     Active Substance: PREDNISOLONE
     Indication: Product used for unknown indication
     Route: 065
  4. CHOLECALCIFEROL [Concomitant]
     Active Substance: CHOLECALCIFEROL
     Route: 065
  5. TRIMETAZIDINE [Concomitant]
     Active Substance: TRIMETAZIDINE
     Route: 065
  6. ASPIRIN [Concomitant]
     Active Substance: ASPIRIN
     Route: 065
  7. ESCITALOPRAM [Concomitant]
     Active Substance: ESCITALOPRAM OXALATE
     Route: 065

REACTIONS (11)
  - Asthenia [Recovered/Resolved]
  - Oedema peripheral [Recovered/Resolved]
  - Ocular hypertension [Recovered/Resolved]
  - Hypertension [Recovered/Resolved]
  - Myalgia [Recovered/Resolved]
  - Pain [Recovered/Resolved]
  - Diabetes mellitus [Recovered/Resolved]
  - Lipohypertrophy [Recovered/Resolved]
  - Immune-mediated myositis [Recovered/Resolved]
  - Muscular weakness [Recovered/Resolved]
  - Off label use [Unknown]
